FAERS Safety Report 5377765-8 (Version None)
Quarter: 2007Q2

REPORT INFORMATION
  Report Type: 
  Country: None (occurrence: None)
  Receive Date: 20070629
  Receipt Date: 20070611
  Transmission Date: 20071010
  Serious: Yes (Hospitalization)
  Sender: FDA-Public Use
  Company Number: 6034403

PATIENT
  Age: 58 Year
  Sex: Female

DRUGS (2)
  1. LEVOTHYROXINE SODIUM [Suspect]
     Indication: HYPOTHYROIDISM
     Dosage: 50 MCG (50 MCG, 1 D) ORAL
     Route: 048
     Dates: end: 20070430
  2. CRESTOR [Suspect]
     Dosage: ORAL
     Route: 048
     Dates: end: 20070430

REACTIONS (1)
  - HEPATITIS [None]
